FAERS Safety Report 6451523-5 (Version None)
Quarter: 2009Q4

REPORT INFORMATION
  Report Type: 
  Country: None (occurrence: None)
  Receive Date: 20091123
  Receipt Date: 20091118
  Transmission Date: 20100525
  Serious: Yes (Death, Other)
  Sender: FDA-Public Use
  Company Number: CN-BRISTOL-MYERS SQUIBB COMPANY-14849541

PATIENT
  Age: 67 Year
  Sex: Female

DRUGS (4)
  1. HEPARIN SODIUM [Suspect]
  2. WARFARIN SODIUM [Suspect]
  3. AMIODARONE HCL [Suspect]
  4. NADROPARIN CALCIUM [Suspect]
     Route: 058

REACTIONS (5)
  - ATRIAL FIBRILLATION [None]
  - DISSEMINATED INTRAVASCULAR COAGULATION [None]
  - RENAL FAILURE [None]
  - RESPIRATORY FAILURE [None]
  - THROMBOCYTOPENIA [None]
